FAERS Safety Report 23189722 (Version 2)
Quarter: 2024Q1

REPORT INFORMATION
  Report Type: Spontaneous
  Country: US (occurrence: US)
  Receive Date: 20231116
  Receipt Date: 20240118
  Transmission Date: 20240410
  Serious: Yes (Death, Hospitalization, Other)
  Sender: FDA-Public Use
  Company Number: US-BRISTOL-MYERS SQUIBB COMPANY-2023-164677

PATIENT
  Age: 98 Year
  Sex: Female
  Weight: 46.27 kg

DRUGS (11)
  1. ELIQUIS [Suspect]
     Active Substance: APIXABAN
     Indication: Atrial fibrillation
     Route: 048
     Dates: start: 20230515, end: 20231121
  2. HYDROCODONE [Concomitant]
     Active Substance: HYDROCODONE
     Indication: Product used for unknown indication
  3. ZYLOPRIM [Concomitant]
     Active Substance: ALLOPURINOL
     Indication: Product used for unknown indication
     Route: 048
     Dates: start: 20230420, end: 20231121
  4. ISOSORBIDE [Concomitant]
     Active Substance: ISOSORBIDE
     Indication: Product used for unknown indication
  5. ALBUTEROL [Concomitant]
     Active Substance: ALBUTEROL
     Indication: Dyspnoea
     Dosage: 2 PUFFS EVERY 4 HOURS
     Route: 055
     Dates: start: 20230829, end: 20231121
  6. ASPIRIN [Concomitant]
     Active Substance: ASPIRIN
     Indication: Product used for unknown indication
     Route: 048
     Dates: start: 20230510, end: 20231121
  7. LIPITOR [Concomitant]
     Active Substance: ATORVASTATIN CALCIUM
     Indication: Product used for unknown indication
     Route: 048
     Dates: start: 20230515, end: 20231121
  8. ISOSORBIDE DINITRATE [Concomitant]
     Active Substance: ISOSORBIDE DINITRATE
     Indication: Product used for unknown indication
     Route: 048
     Dates: start: 20230828, end: 20231121
  9. LOPRESSOR [Concomitant]
     Active Substance: METOPROLOL TARTRATE
     Indication: Product used for unknown indication
     Dosage: 1/2 TABLET
     Route: 048
     Dates: start: 20230803, end: 20231121
  10. MORPHINE [Concomitant]
     Active Substance: MORPHINE
     Indication: Product used for unknown indication
     Dosage: 20MG/ML, TAKE 0.5 ML BY MOUTH EVERY HOUR AS NEED FOR PAIN
     Route: 048
     Dates: start: 20230918, end: 20231121
  11. POTASSIUM CHLORIDE [Concomitant]
     Active Substance: POTASSIUM CHLORIDE
     Indication: Product used for unknown indication
     Dosage: TAKE 2 TABLETS BY MOUTH
     Route: 048
     Dates: start: 20230803, end: 20231121

REACTIONS (5)
  - Cardiac failure congestive [Fatal]
  - Hypertension [Unknown]
  - Hyperlipidaemia [Unknown]
  - Gout [Unknown]
  - Kyphosis [Unknown]
